FAERS Safety Report 6478318-0 (Version None)
Quarter: 2009Q4

REPORT INFORMATION
  Report Type: 
  Country: None (occurrence: None)
  Receive Date: 20091207
  Receipt Date: 20091127
  Transmission Date: 20100525
  Serious: Yes (Hospitalization)
  Sender: FDA-Public Use
  Company Number: JP-ABBOTT-09P-087-0577739-00

PATIENT
  Sex: Male

DRUGS (14)
  1. LEUPLIN FOR INJECTION KIT 3.75 MG [Suspect]
     Indication: PROSTATE CANCER STAGE IV
     Route: 058
     Dates: start: 20090401, end: 20090516
  2. LEUPLIN SR FOR INJECTION 11.25 MG [Suspect]
     Indication: PROSTATE CANCER STAGE IV
     Route: 058
     Dates: start: 20090613
  3. LOXOPROFEN SODIUM [Suspect]
     Indication: BACK PAIN
     Route: 048
     Dates: start: 20090225, end: 20090401
  4. EPOETIN ALFA [Concomitant]
     Indication: NEPHROGENIC ANAEMIA
     Route: 058
     Dates: start: 20090209, end: 20090413
  5. TAMSULOSIN HYDROCHLORIDE [Concomitant]
     Indication: BENIGN PROSTATIC HYPERPLASIA
     Route: 048
     Dates: start: 20090207
  6. UBRETID [Concomitant]
     Indication: BENIGN PROSTATIC HYPERPLASIA
     Route: 048
     Dates: start: 20090207, end: 20090407
  7. UBRETID [Concomitant]
     Indication: NEUROGENIC BLADDER
  8. GASTER D [Concomitant]
     Indication: GASTRITIS
     Route: 048
     Dates: start: 20090205
  9. ACTONEL [Concomitant]
     Indication: OSTEOPOROSIS
     Route: 048
     Dates: start: 20090226, end: 20090416
  10. BIOFERMIN R [Concomitant]
     Indication: GASTROINTESTINAL DISORDER
     Route: 048
     Dates: start: 20090217
  11. PROSTAL [Concomitant]
     Indication: PROSTATE CANCER
     Route: 048
     Dates: start: 20090323, end: 20090406
  12. CEFAZOLIN SODIUM [Concomitant]
     Indication: INFECTION PROPHYLAXIS
     Route: 041
     Dates: start: 20090317, end: 20090317
  13. CEFAZOLIN SODIUM [Concomitant]
     Route: 041
     Dates: start: 20090318, end: 20090318
  14. LEVOFLOXACIN [Concomitant]
     Indication: DRUG USE FOR UNKNOWN INDICATION
     Route: 048
     Dates: start: 20090318, end: 20090325

REACTIONS (1)
  - RENAL FAILURE ACUTE [None]
